FAERS Safety Report 5605809-4 (Version None)
Quarter: 2008Q1

REPORT INFORMATION
  Report Type: 
  Country: None (occurrence: None)
  Receive Date: 20080129
  Receipt Date: 20080117
  Transmission Date: 20080703
  Serious: Yes (Other)
  Sender: FDA-Public Use
  Company Number: US-TYCO HEALTHCARE/MALLINCKRODT-T200800067

PATIENT

DRUGS (4)
  1. OPTIMARK [Suspect]
     Indication: NUCLEAR MAGNETIC RESONANCE IMAGING
     Dosage: UNK, SINGLE
     Dates: start: 20060814, end: 20060814
  2. OPTIMARK [Suspect]
     Indication: ANGIOGRAM
     Dosage: UNK, SINGLE
     Dates: start: 20070311
  3. OMNISCAN [Suspect]
     Indication: NUCLEAR MAGNETIC RESONANCE IMAGING
     Dosage: UNK, SINGLE
     Dates: start: 19980920, end: 19980920
  4. OMNISCAN [Suspect]
     Indication: ANGIOGRAM
     Dosage: UNK, SINGLE
     Dates: start: 20060110

REACTIONS (1)
  - NEPHROGENIC SYSTEMIC FIBROSIS [None]
